FAERS Safety Report 7924041 (Version 3)
Quarter: 2012Q4

REPORT INFORMATION
  Report Type: 
  Country: US (occurrence: US)
  Receive Date: 20110502
  Receipt Date: 20121211
  Transmission Date: 20130627
  Serious: Yes (Hospitalization)
  Sender: FDA-Public Use
  Company Number: US-BAYER-2011-032319

PATIENT
  Age: 47 Year
  Sex: Female
  Weight: 76 kg

DRUGS (4)
  1. YAZ [Suspect]
     Indication: IRREGULAR MENSTRUAL CYCLE
     Dosage: UNK
     Dates: start: 20060911, end: 20061009
  2. YASMIN [Suspect]
     Indication: MENSTRUAL CYCLE MANAGEMENT
  3. RESPIRATORY SYSTEM [Concomitant]
     Indication: SKIN RASH
     Dosage: 1 daily
     Route: 048
     Dates: start: 20060911
  4. MULTIVITAMIN [Concomitant]
     Indication: SUPPLEMENTATION THERAPY
     Dosage: daily
     Route: 048

REACTIONS (15)
  - Thrombotic stroke [Recovered/Resolved]
  - Vision blurred [Recovered/Resolved]
  - Muscular weakness [Recovered/Resolved]
  - Dysarthria [Recovered/Resolved]
  - Mental disorder [Recovered/Resolved]
  - VIIth nerve paralysis [Recovered/Resolved]
  - Memory impairment [Recovered/Resolved]
  - Disturbance in attention [Recovered/Resolved]
  - Fear [None]
  - Agraphia [Recovered/Resolved]
  - Speech disorder [Recovered/Resolved]
  - Pain [None]
  - Anxiety [None]
  - Emotional distress [None]
  - Off label use [None]
